FAERS Safety Report 8859205 (Version 1)
Quarter: 2012Q4

REPORT INFORMATION
  Report Type: Spontaneous
  Country: US (occurrence: None)
  Receive Date: 20121024
  Receipt Date: 20121024
  Transmission Date: 20130627
  Serious: Yes (Other)
  Sender: FDA-Public Use
  Company Number: None

PATIENT
  Age: 17 Year
  Sex: Female
  Weight: 54.43 kg

DRUGS (2)
  1. AZURETTE [Suspect]
     Indication: PREMENSTRUAL SYNDROME
     Dates: start: 20121007, end: 20121022
  2. AZURETTE [Suspect]
     Indication: BIRTH CONTROL
     Dates: start: 20121007, end: 20121022

REACTIONS (5)
  - Emotional disorder [None]
  - Crying [None]
  - Mood altered [None]
  - Feeling abnormal [None]
  - Product substitution issue [None]
